FAERS Safety Report 18312823 (Version 1)
Quarter: 2020Q3

REPORT INFORMATION
  Report Type: Spontaneous
  Country: JP (occurrence: JP)
  Receive Date: 20200925
  Receipt Date: 20200925
  Transmission Date: 20201103
  Serious: No
  Sender: FDA-Public Use
  Company Number: JP-ELI_LILLY_AND_COMPANY-JP202009009825

PATIENT
  Sex: Female

DRUGS (9)
  1. DULOXETINE HYDROCHLORIDE. [Suspect]
     Active Substance: DULOXETINE HYDROCHLORIDE
     Dosage: 60 MG, DAILY
     Route: 048
     Dates: start: 20200718, end: 20200911
  2. ROSUVASTATIN CALCIUM. [Suspect]
     Active Substance: ROSUVASTATIN CALCIUM
     Indication: PRODUCT USED FOR UNKNOWN INDICATION
     Dosage: 2.5 MG, DAILY
     Route: 048
  3. ZALTOPROFEN [Suspect]
     Active Substance: ZALTOPROFEN
     Indication: OSTEOARTHRITIS
     Dosage: 80 MG, TID
     Route: 048
     Dates: start: 20200321, end: 20200911
  4. ELDECALCITOL [Concomitant]
     Active Substance: ELDECALCITOL
     Dosage: UNK
     Route: 048
     Dates: start: 20200830
  5. REBAMIPIDE [Concomitant]
     Active Substance: REBAMIPIDE
     Dosage: UNK
     Route: 048
     Dates: start: 20200321, end: 20200911
  6. DULOXETINE HYDROCHLORIDE. [Suspect]
     Active Substance: DULOXETINE HYDROCHLORIDE
     Indication: OSTEOARTHRITIS
     Dosage: 20 MG, DAILY
     Route: 048
     Dates: start: 20200704, end: 20200710
  7. DULOXETINE HYDROCHLORIDE. [Suspect]
     Active Substance: DULOXETINE HYDROCHLORIDE
     Dosage: 40 MG, DAILY
     Route: 048
     Dates: start: 20200711, end: 20200717
  8. EDIROL [Concomitant]
     Active Substance: ELDECALCITOL
     Dosage: UNK
     Route: 048
     Dates: start: 20180324, end: 20200829
  9. VIVIANT [Concomitant]
     Active Substance: BAZEDOXIFENE
     Dosage: UNK
     Route: 048
     Dates: start: 20170317

REACTIONS (2)
  - Aspartate aminotransferase increased [Unknown]
  - Alanine aminotransferase increased [Unknown]

NARRATIVE: CASE EVENT DATE: 20200905
